FAERS Safety Report 5882495-X (Version None)
Quarter: 2008Q3

REPORT INFORMATION
  Report Type: 
  Country: None (occurrence: None)
  Receive Date: 20080913
  Receipt Date: 20080806
  Transmission Date: 20090109
  Serious: No
  Sender: FDA-Public Use
  Company Number: US-ABBOTT-08P-163-0469359-00

PATIENT
  Sex: Male
  Weight: 104.42 kg

DRUGS (2)
  1. HUMIRA [Suspect]
     Indication: PSORIASIS
     Dosage: 80 MG INITIALLY
     Dates: start: 20080601, end: 20080601
  2. HUMIRA [Suspect]
     Route: 058
     Dates: start: 20080601

REACTIONS (2)
  - EXTRASYSTOLES [None]
  - RASH ERYTHEMATOUS [None]
